FAERS Safety Report 7557268-2 (Version None)
Quarter: 2011Q2

REPORT INFORMATION
  Report Type: 
  Country: None (occurrence: None)
  Receive Date: 20110620
  Receipt Date: 20110614
  Transmission Date: 20111010
  Serious: Yes (Death, Hospitalization, Other)
  Sender: FDA-Public Use
  Company Number: CL-ROCHE-780417

PATIENT
  Sex: Male
  Weight: 66 kg

DRUGS (1)
  1. CAPECITABINE [Suspect]
     Indication: COLON CANCER
     Dosage: 1800 MG IN THE MORNING AND 1800 MG IN THE NIGHT.
     Route: 048
     Dates: start: 20110419, end: 20110529

REACTIONS (5)
  - PULMONARY EMBOLISM [None]
  - DEHYDRATION [None]
  - VOMITING [None]
  - RESPIRATORY FAILURE [None]
  - DIARRHOEA [None]
